FAERS Safety Report 8458394-6 (Version None)
Quarter: 2012Q2

REPORT INFORMATION
  Report Type: 
  Country: None (occurrence: None)
  Receive Date: 20120622
  Receipt Date: 20120613
  Transmission Date: 20120825
  Serious: Yes (Other)
  Sender: FDA-Public Use
  Company Number: US-SANOFI-AVENTIS-2012SA041784

PATIENT
  Age: 88 Year
  Sex: Male

DRUGS (5)
  1. MULTAQ [Suspect]
     Route: 048
     Dates: start: 20120501
  2. METOPROLOL [Suspect]
     Route: 065
     Dates: end: 20120101
  3. FELODIPINE [Suspect]
     Route: 065
  4. CELEBREX [Concomitant]
  5. VESICARE [Concomitant]

REACTIONS (1)
  - HYPOTENSION [None]
